FAERS Safety Report 23056231 (Version 1)
Quarter: 2023Q4

REPORT INFORMATION
  Report Type: Spontaneous
  Country: None (occurrence: US)
  Receive Date: 20231011
  Receipt Date: 20231011
  Transmission Date: 20240110
  Serious: No
  Sender: FDA-Public Use
  Company Number: US-Oxford Pharmaceuticals, LLC-2146935

PATIENT
  Sex: Female

DRUGS (1)
  1. CARISOPRODOL [Suspect]
     Active Substance: CARISOPRODOL
     Indication: Product used for unknown indication
     Dates: start: 20230831

REACTIONS (1)
  - Drug ineffective [Unknown]
